FAERS Safety Report 11730735 (Version 1)
Quarter: 2015Q4

REPORT INFORMATION
  Report Type: Spontaneous
  Country: US (occurrence: US)
  Receive Date: 20151110
  Receipt Date: 20151110
  Transmission Date: 20160304
  Serious: No
  Sender: FDA-Public Use
  Company Number: US-ELI_LILLY_AND_COMPANY-US201202003535

PATIENT
  Sex: Female

DRUGS (1)
  1. FORTEO [Suspect]
     Active Substance: TERIPARATIDE
     Indication: OSTEOPOROSIS
     Dosage: 20 UG, QD

REACTIONS (15)
  - Myalgia [Unknown]
  - Pain in extremity [Unknown]
  - Nail disorder [Unknown]
  - Pain [Unknown]
  - Nausea [Unknown]
  - Onychoclasis [Unknown]
  - Arthralgia [Unknown]
  - Bone disorder [Unknown]
  - Fatigue [Unknown]
  - Alopecia [Unknown]
  - Spinal column stenosis [Unknown]
  - Scoliosis [Unknown]
  - Back pain [Unknown]
  - Vomiting [Unknown]
  - Injection site pain [Unknown]
